FAERS Safety Report 4700563-2 (Version None)
Quarter: 2005Q2

REPORT INFORMATION
  Report Type: 
  Country: None (occurrence: None)
  Receive Date: 20050627
  Receipt Date: 20050627
  Transmission Date: 20051028
  Serious: Yes (Life-Threatening)
  Sender: FDA-Public Use
  Company Number: None

PATIENT
  Age: 71 Year
  Sex: Male
  Weight: 108.8633 kg

DRUGS (2)
  1. ZOCOR [Suspect]
     Indication: MUSCLE DISORDER
     Dosage: ONCE DAILY ORAL
     Route: 048
  2. LOPRESSOR [Suspect]
     Indication: RESPIRATORY DISORDER
     Dosage: TWICE DAILY PARENTERAL
     Route: 051

REACTIONS (4)
  - ASTHENIA [None]
  - DIFFICULTY IN WALKING [None]
  - DYSPNOEA [None]
  - FEELING ABNORMAL [None]
